FAERS Safety Report 8961734 (Version 2)
Quarter: 2013Q1

REPORT INFORMATION
  Report Type: Spontaneous
  Country: MX (occurrence: MX)
  Receive Date: 20121213
  Receipt Date: 20130115
  Transmission Date: 20140127
  Serious: Yes (Other)
  Sender: FDA-Public Use
  Company Number: PHHY2012MX114055

PATIENT
  Age: 77 Year
  Sex: Female

DRUGS (1)
  1. EXFORGE HCT [Suspect]
     Indication: HYPERTENSION
     Dosage: 1 DF (320/10/25 MG) DAILY
     Route: 048
     Dates: start: 20120705

REACTIONS (4)
  - Abasia [Recovered/Resolved]
  - Atrophy [Recovered/Resolved]
  - Inflammation [Unknown]
  - Fluid retention [Unknown]
